FAERS Safety Report 5787543-3 (Version None)
Quarter: 2008Q2

REPORT INFORMATION
  Report Type: 
  Country: None (occurrence: None)
  Receive Date: 20080625
  Receipt Date: 20071024
  Transmission Date: 20081010
  Serious: No
  Sender: FDA-Public Use
  Company Number: US-ASTRAZENECA-2007UW24709

PATIENT
  Age: 61 Year
  Sex: Female
  Weight: 65.8 kg

DRUGS (4)
  1. PULMICORT FLEXHALER [Suspect]
     Indication: ASTHMA
     Route: 055
     Dates: start: 20071020
  2. THIORIDAZINE HCL [Concomitant]
  3. PREMPRO [Concomitant]
  4. MELLARIL [Concomitant]

REACTIONS (2)
  - DYSPNOEA [None]
  - PULMONARY CONGESTION [None]
